FAERS Safety Report 5496624-3 (Version None)
Quarter: 2007Q4

REPORT INFORMATION
  Report Type: 
  Country: None (occurrence: None)
  Receive Date: 20071025
  Receipt Date: 20070626
  Transmission Date: 20080405
  Serious: Yes (Hospitalization)
  Sender: FDA-Public Use
  Company Number: A0660243A

PATIENT
  Age: 70 Year
  Sex: Male

DRUGS (10)
  1. ADVAIR DISKUS 100/50 [Suspect]
     Indication: CHRONIC OBSTRUCTIVE PULMONARY DISEASE
     Dosage: 1PUFF TWICE PER DAY
     Route: 055
     Dates: start: 20060101
  2. DUONEB [Concomitant]
  3. LORAZEPAM [Concomitant]
  4. PROTONIX [Concomitant]
  5. THEOPHYLLINE [Concomitant]
  6. BROMAZEPAM [Concomitant]
  7. POTASSIUM CHLORIDE [Concomitant]
  8. FUROSEMIDE [Concomitant]
  9. SERTRALINE [Concomitant]
  10. PREDNISOLONE [Concomitant]

REACTIONS (1)
  - PNEUMONIA [None]
